FAERS Safety Report 10034843 (Version 1)
Quarter: 2014Q1

REPORT INFORMATION
  Report Type: Spontaneous
  Country: US (occurrence: None)
  Receive Date: 20140306
  Receipt Date: 20140306
  Transmission Date: 20141002
  Serious: Yes (Other)
  Sender: FDA-Public Use
  Company Number: 163-21880-13063013

PATIENT
  Age: 43 Year
  Sex: Female
  Weight: 108.86 kg

DRUGS (7)
  1. REVLIMID (LENALIDOMIDE) (5 MILLIGRAM, CAPSULES) [Suspect]
     Indication: PLASMA CELL MYELOMA
     Route: 048
     Dates: start: 201204, end: 201210
  2. NEURONTIN (GABAPENTIN) [Concomitant]
  3. DEXAMETHASONE [Concomitant]
  4. CARVEDILOL [Concomitant]
  5. SIMVASTATIN [Concomitant]
  6. ASA (ACETYLSALICYLIC ACID) [Concomitant]
  7. SENSIPAR (CINACALCET HYDROCHLORIDE) [Concomitant]

REACTIONS (2)
  - Pancytopenia [None]
  - Plasma cell myeloma [None]
